FAERS Safety Report 5675678-5 (Version None)
Quarter: 2008Q1

REPORT INFORMATION
  Report Type: 
  Country: None (occurrence: None)
  Receive Date: 20080321
  Receipt Date: 20080313
  Transmission Date: 20080703
  Serious: Yes (Other)
  Sender: FDA-Public Use
  Company Number: PHEH2008US01065

PATIENT
  Sex: Female

DRUGS (2)
  1. TASIGNA [Suspect]
     Indication: CHRONIC MYELOID LEUKAEMIA
     Dosage: 400 MG, BID
     Route: 048
     Dates: start: 20071201, end: 20071201
  2. TASIGNA [Suspect]
     Route: 048
     Dates: start: 20071201, end: 20071210

REACTIONS (1)
  - ELECTROCARDIOGRAM QT PROLONGED [None]
